FAERS Safety Report 9844366 (Version 4)
Quarter: 2014Q2

REPORT INFORMATION
  Report Type: Spontaneous
  Country: GB (occurrence: GB)
  Receive Date: 20140127
  Receipt Date: 20140519
  Transmission Date: 20141212
  Serious: Yes (Other)
  Sender: FDA-Public Use
  Company Number: PHFR2014GB000885

PATIENT
  Age: 50 Year
  Sex: Female
  Weight: 95 kg

DRUGS (13)
  1. CLOZARIL [Suspect]
     Dosage: UNK
     Route: 048
     Dates: start: 20120922
  2. CLOZARIL [Suspect]
     Dosage: 425 MG, UNK
     Route: 048
     Dates: start: 2012, end: 201312
  3. CLOZARIL [Suspect]
     Dosage: 325 MG, UNK
     Route: 048
  4. CLOZARIL [Suspect]
     Dosage: 200 MG, UNK
     Route: 048
     Dates: end: 201312
  5. CLOZARIL [Suspect]
     Dosage: UNK
     Dates: start: 20140122
  6. ASPIRIN [Concomitant]
     Dosage: 75 MG, UNK
     Route: 048
  7. BISOPROLOL [Concomitant]
     Dosage: 425 MG, UNK
     Route: 048
  8. FRUSEMIDE [Concomitant]
     Dosage: 40 MG, UNK
     Route: 048
  9. METFORMIN [Concomitant]
     Dosage: 500 MG, UNK
     Route: 048
  10. ISOSORBIDE MONONITRATE [Concomitant]
     Dosage: 25 MG, UNK
     Route: 048
  11. HYOSCINE HYDROBROMIDE [Concomitant]
     Dosage: 300 UG, UNK
     Route: 048
  12. SODIUM VALPROATE [Concomitant]
     Dosage: 500 MG, BID
     Route: 048
  13. SIMVASTATIN [Concomitant]
     Dosage: 40 MG, UNK
     Route: 048

REACTIONS (3)
  - Choking [Recovering/Resolving]
  - Schizophrenia [Recovering/Resolving]
  - Salivary hypersecretion [Recovering/Resolving]
